FAERS Safety Report 6238646-0 (Version None)
Quarter: 2009Q2

REPORT INFORMATION
  Report Type: 
  Country: None (occurrence: None)
  Receive Date: 20090622
  Receipt Date: 20090618
  Transmission Date: 20091009
  Serious: Yes (Hospitalization)
  Sender: FDA-Public Use
  Company Number: FR-RB-017079-09

PATIENT
  Age: 42 Year
  Sex: Male

DRUGS (2)
  1. SUBOXONE [Suspect]
     Route: 060
     Dates: start: 20090113, end: 20090209
  2. SUBUTEX [Concomitant]
     Route: 060
     Dates: start: 20090210

REACTIONS (2)
  - COMA [None]
  - EPILEPSY [None]
